FAERS Safety Report 15453233 (Version 2)
Quarter: 2018Q4

REPORT INFORMATION
  Report Type: Spontaneous
  Country: US (occurrence: US)
  Receive Date: 20181001
  Receipt Date: 20181002
  Transmission Date: 20190204
  Serious: Yes (Other)
  Sender: FDA-Public Use
  Company Number: US-PFIZER INC-2018392362

PATIENT
  Age: 59 Year
  Sex: Male
  Weight: 129.27 kg

DRUGS (3)
  1. LYRICA [Suspect]
     Active Substance: PREGABALIN
     Indication: INTERVERTEBRAL DISC INJURY
     Dosage: 225 MG, DAILY (75 MG CAPSULES-3 CAPSULES TAKEN BY MOUTH DAILY)
     Route: 048
  2. LYRICA [Suspect]
     Active Substance: PREGABALIN
     Indication: SPINAL COLUMN INJURY
  3. LYRICA [Suspect]
     Active Substance: PREGABALIN
     Indication: BACK PAIN

REACTIONS (7)
  - Gastric ulcer [Unknown]
  - Speech disorder [Unknown]
  - Hypoacusis [Unknown]
  - Intentional product use issue [Unknown]
  - Facial paralysis [Recovering/Resolving]
  - Labyrinthitis [Recovered/Resolved]
  - Type 2 diabetes mellitus [Not Recovered/Not Resolved]

NARRATIVE: CASE EVENT DATE: 2018
